FAERS Safety Report 7843184-5 (Version None)
Quarter: 2011Q4

REPORT INFORMATION
  Report Type: 
  Country: None (occurrence: None)
  Receive Date: 20111025
  Receipt Date: 20111020
  Transmission Date: 20120403
  Serious: No
  Sender: FDA-Public Use
  Company Number: US-PFIZER INC-2011254356

PATIENT
  Sex: Female
  Weight: 74.83 kg

DRUGS (1)
  1. ADVIL CONGESTION RELIEF [Suspect]
     Indication: SINUS HEADACHE
     Dosage: 200/10 MG, 4X/DAY
     Route: 048
     Dates: start: 20111001, end: 20111001

REACTIONS (1)
  - DRUG INEFFECTIVE [None]
